FAERS Safety Report 13905267 (Version 1)
Quarter: 2017Q3

REPORT INFORMATION
  Report Type: Spontaneous
  Country: GB (occurrence: GB)
  Receive Date: 20170825
  Receipt Date: 20170825
  Transmission Date: 20171127
  Serious: Yes (Disabling)
  Sender: FDA-Public Use
  Company Number: PHFR2017GB006799

PATIENT
  Age: 70 Year
  Sex: Female
  Weight: 76.56 kg

DRUGS (1)
  1. TERBINAFINE. [Suspect]
     Active Substance: TERBINAFINE
     Indication: ONYCHOMYCOSIS
     Route: 048
     Dates: start: 20170615, end: 20170807

REACTIONS (7)
  - Aphthous ulcer [Not Recovered/Not Resolved]
  - Saliva altered [Not Recovered/Not Resolved]
  - Ageusia [Not Recovered/Not Resolved]
  - Oral discomfort [Unknown]
  - Depression [Not Recovered/Not Resolved]
  - Fatigue [Not Recovered/Not Resolved]
  - Dysgeusia [Not Recovered/Not Resolved]

NARRATIVE: CASE EVENT DATE: 20170714
